FAERS Safety Report 7525772-9 (Version None)
Quarter: 2011Q2

REPORT INFORMATION
  Report Type: 
  Country: None (occurrence: None)
  Receive Date: 20110602
  Receipt Date: 20110602
  Transmission Date: 20111010
  Serious: Yes (Disabling)
  Sender: FDA-Public Use
  Company Number: None

PATIENT
  Age: 81 Year
  Sex: Female
  Weight: 61.2356 kg

DRUGS (2)
  1. ALENDRONATE SODIUM [Suspect]
     Indication: BONE DISORDER
     Dosage: 70 MG 1 X WEEKLY
     Dates: start: 20110326
  2. ALENDRONATE SODIUM [Suspect]
     Indication: BONE DISORDER
     Dosage: 70 MG 1 X WEEKLY
     Dates: start: 20110319

REACTIONS (3)
  - MYALGIA [None]
  - ASTHENIA [None]
  - INADEQUATE ANALGESIA [None]
